FAERS Safety Report 9888249 (Version 1)
Quarter: 2014Q1

REPORT INFORMATION
  Report Type: Spontaneous
  Country: US (occurrence: None)
  Receive Date: 20140210
  Receipt Date: 20140210
  Transmission Date: 20141002
  Serious: Yes (Life-Threatening, Disabling)
  Sender: FDA-Public Use
  Company Number: None

PATIENT
  Age: 33 Year
  Sex: Male
  Weight: 95.26 kg

DRUGS (1)
  1. LEVAQUIN [Suspect]
     Indication: EPIDIDYMITIS
     Dosage: TAKEN BY MOUTH
     Route: 048
     Dates: start: 20130124, end: 20130201

REACTIONS (5)
  - Tendon disorder [None]
  - Vision blurred [None]
  - Insomnia [None]
  - Muscle twitching [None]
  - Pain [None]
